FAERS Safety Report 23250942 (Version 2)
Quarter: 2023Q4

REPORT INFORMATION
  Report Type: Spontaneous
  Country: TW (occurrence: TW)
  Receive Date: 20231201
  Receipt Date: 20231206
  Transmission Date: 20240110
  Serious: Yes (Other)
  Sender: FDA-Public Use
  Company Number: TW-009507513-2311TWN010590

PATIENT
  Age: 42 Year
  Sex: Female

DRUGS (2)
  1. PEMBROLIZUMAB [Suspect]
     Active Substance: PEMBROLIZUMAB
     Indication: Uterine leiomyosarcoma
     Dosage: 200 MILLIGRAM, Q3W
  2. LENVATINIB MESYLATE [Suspect]
     Active Substance: LENVATINIB MESYLATE
     Indication: Uterine leiomyosarcoma
     Dosage: 20 MILLIGRAM, QD
     Route: 048

REACTIONS (2)
  - Skin reaction [Unknown]
  - Product use in unapproved indication [Unknown]
